FAERS Safety Report 13292859 (Version 5)
Quarter: 2019Q4

REPORT INFORMATION
  Report Type: Spontaneous
  Country: JP (occurrence: JP)
  Receive Date: 20170303
  Receipt Date: 20191021
  Transmission Date: 20200122
  Serious: Yes (Death, Hospitalization)
  Sender: FDA-Public Use
  Company Number: JP-WARNER CHILCOTT-2016-002515

PATIENT
  Sex: Female
  Weight: 47.5 kg

DRUGS (1)
  1. RISEDRONATE SODIUM UNK [Suspect]
     Active Substance: RISEDRONATE SODIUM
     Indication: OSTEOPOROSIS
     Dosage: 17.5 MG, UNKNOWN
     Route: 048
     Dates: start: 2005, end: 2012

REACTIONS (3)
  - Fall [Recovered/Resolved]
  - Cardiac failure congestive [Fatal]
  - Atypical femur fracture [Unknown]

NARRATIVE: CASE EVENT DATE: 20120107
